FAERS Safety Report 11522776 (Version 1)
Quarter: 2015Q3

REPORT INFORMATION
  Report Type: Spontaneous
  Country: US (occurrence: US)
  Receive Date: 20150918
  Receipt Date: 20150918
  Transmission Date: 20151125
  Serious: Yes (Other)
  Sender: FDA-Public Use
  Company Number: US-ROCHE-640233

PATIENT
  Age: 57 Year
  Sex: Male
  Weight: 91.6 kg

DRUGS (4)
  1. PEGASYS [Suspect]
     Active Substance: PEGINTERFERON ALFA-2A
     Indication: HEPATITIS C
     Dosage: FORM: PRE FILLED SYRINGE; STRENGTH: 180 UG/0.5 ML
     Route: 058
  2. RIBAVIRIN. [Suspect]
     Active Substance: RIBAVIRIN
     Indication: HEPATITIS C
     Route: 048
  3. RIBAVIRIN. [Suspect]
     Active Substance: RIBAVIRIN
     Dosage: DOSE LOWERED, DIVIDED DOSES
     Route: 048
     Dates: start: 20091018, end: 20100402
  4. PEGASYS [Suspect]
     Active Substance: PEGINTERFERON ALFA-2A
     Dosage: DOSE LOWERED
     Route: 058
     Dates: start: 20091018, end: 20100402

REACTIONS (15)
  - Anaemia [Recovering/Resolving]
  - Pallor [Unknown]
  - Thrombocytopenia [Recovering/Resolving]
  - Injection site mass [Not Recovered/Not Resolved]
  - White blood cell count decreased [Recovering/Resolving]
  - Respiratory tract congestion [Not Recovered/Not Resolved]
  - Platelet count decreased [Unknown]
  - Haemoglobin [Recovering/Resolving]
  - Gastric disorder [Not Recovered/Not Resolved]
  - Fatigue [Not Recovered/Not Resolved]
  - Blood count abnormal [Unknown]
  - Decreased appetite [Unknown]
  - Leukopenia [Recovering/Resolving]
  - Diarrhoea [Not Recovered/Not Resolved]
  - Weight decreased [Unknown]

NARRATIVE: CASE EVENT DATE: 20090429
